FAERS Safety Report 23090523 (Version 1)
Quarter: 2023Q4

REPORT INFORMATION
  Report Type: Spontaneous
  Country: US (occurrence: US)
  Receive Date: 20231020
  Receipt Date: 20231020
  Transmission Date: 20240109
  Serious: Yes (Death, Life-Threatening, Hospitalization, Other)
  Sender: FDA-Public Use
  Company Number: US-AMGEN-USASP2023183614

PATIENT

DRUGS (1)
  1. BEVACIZUMAB [Suspect]
     Active Substance: BEVACIZUMAB
     Indication: Meningioma
     Dosage: UNK
     Route: 065

REACTIONS (26)
  - Death [Fatal]
  - Coma [Unknown]
  - Pneumonia [Unknown]
  - Blindness [Unknown]
  - Hemiplegia [Unknown]
  - Seizure [Unknown]
  - Cerebrospinal fluid leakage [Unknown]
  - Carotid aneurysm rupture [Unknown]
  - Arrhythmia [Unknown]
  - Meningioma [Unknown]
  - Meningitis [Unknown]
  - Radiation necrosis [Unknown]
  - Nervous system disorder [Unknown]
  - Dyskinesia [Unknown]
  - Organ failure [Unknown]
  - Multiple organ dysfunction syndrome [Unknown]
  - Cerebral infarction [Unknown]
  - Headache [Unknown]
  - Treatment failure [Unknown]
  - Skin atrophy [Unknown]
  - Wound infection [Unknown]
  - Gait disturbance [Unknown]
  - Blood sodium abnormal [Unknown]
  - Off label use [Unknown]
  - Lethargy [Unknown]
  - Infection [Unknown]
